FAERS Safety Report 6575160-7 (Version None)
Quarter: 2010Q1

REPORT INFORMATION
  Report Type: 
  Country: None (occurrence: None)
  Receive Date: 20100209
  Receipt Date: 20100127
  Transmission Date: 20100710
  Serious: Yes (Other)
  Sender: FDA-Public Use
  Company Number: VE-BAYER-201011032LA

PATIENT
  Age: 48 Year
  Sex: Male

DRUGS (2)
  1. NEXAVAR [Suspect]
     Indication: HEPATIC NEOPLASM MALIGNANT
     Dosage: TOTAL DAILY DOSE: 800 MG
     Route: 048
     Dates: start: 20090901, end: 20100101
  2. PROPRANOLOL [Concomitant]
     Indication: HYPERTENSION
     Route: 048

REACTIONS (1)
  - POSTOPERATIVE WOUND COMPLICATION [None]
